FAERS Safety Report 8723349 (Version 2)
Quarter: 2012Q4

REPORT INFORMATION
  Report Type: 
  Country: US (occurrence: US)
  Receive Date: 20120814
  Receipt Date: 20121008
  Transmission Date: 20130627
  Serious: No
  Sender: FDA-Public Use
  Company Number: US-ASTRAZENECA-2012SE53879

PATIENT
  Age: 38 Year
  Sex: Female
  Weight: 70.3 kg

DRUGS (4)
  1. NEXIUM [Suspect]
     Indication: GASTROOESOPHAGEAL REFLUX DISEASE
     Route: 048
     Dates: start: 2009
  2. NEXIUM [Suspect]
     Indication: GASTROOESOPHAGEAL REFLUX DISEASE
     Dosage: UNKNOWN MILLIGRAMS 2X PER DAY ONE IN AM AND ONE IN THE PM
     Route: 048
  3. FISH OIL [Concomitant]
  4. MVI [Concomitant]

REACTIONS (5)
  - Gastric disorder [Unknown]
  - Abdominal pain upper [Unknown]
  - Malaise [Unknown]
  - Off label use [Unknown]
  - Product taste abnormal [Unknown]
